FAERS Safety Report 17982787 (Version 1)
Quarter: 2020Q3

REPORT INFORMATION
  Report Type: Spontaneous
  Country: PT (occurrence: PT)
  Receive Date: 20200706
  Receipt Date: 20200706
  Transmission Date: 20201103
  Serious: Yes (Other)
  Sender: FDA-Public Use
  Company Number: PT-ROCHE-2636484

PATIENT
  Age: 56 Year
  Sex: Female

DRUGS (2)
  1. OMALIZUMAB. [Suspect]
     Active Substance: OMALIZUMAB
     Indication: CHRONIC SPONTANEOUS URTICARIA
     Dosage: UNK
     Route: 065
     Dates: start: 2017
  2. OMALIZUMAB. [Suspect]
     Active Substance: OMALIZUMAB
     Dosage: UNK
     Route: 065
     Dates: start: 201803

REACTIONS (3)
  - Contusion [Unknown]
  - Angioedema [Recovered/Resolved]
  - Anaphylactic reaction [Unknown]
